FAERS Safety Report 9054896 (Version 1)
Quarter: 2013Q1

REPORT INFORMATION
  Report Type: Spontaneous
  Country: FR (occurrence: FR)
  Receive Date: 20130208
  Receipt Date: 20130208
  Transmission Date: 20140127
  Serious: Yes (Other)
  Sender: FDA-Public Use
  Company Number: FR-JNJFOC-20130117133

PATIENT
  Age: 32 Year
  Sex: Female

DRUGS (1)
  1. RISPERDAL [Suspect]
     Indication: PRODUCT USED FOR UNKNOWN INDICATION
     Route: 048

REACTIONS (6)
  - Weight increased [Unknown]
  - Dysmenorrhoea [Unknown]
  - Blood prolactin increased [Unknown]
  - Oestradiol increased [Unknown]
  - Blood growth hormone increased [Unknown]
  - Pituitary tumour benign [Unknown]
